FAERS Safety Report 20018579 (Version 1)
Quarter: 2021Q4

REPORT INFORMATION
  Report Type: Spontaneous
  Country: US (occurrence: US)
  Receive Date: 20211101
  Receipt Date: 20211101
  Transmission Date: 20220304
  Serious: No
  Sender: FDA-Public Use
  Company Number: ENDG20-08378

PATIENT
  Sex: Female
  Weight: 49.9 kg

DRUGS (3)
  1. AMITRIPTYLINE HYDROCHLORIDE [Suspect]
     Active Substance: AMITRIPTYLINE HYDROCHLORIDE
     Indication: Sleep disorder
     Dosage: 25 MG, UNKNOWN
     Route: 065
  2. AMITRIPTYLINE HYDROCHLORIDE [Suspect]
     Active Substance: AMITRIPTYLINE HYDROCHLORIDE
     Dosage: 50 MG, AT NIGHT TIME
     Route: 065
  3. LYRICA [Concomitant]
     Active Substance: PREGABALIN
     Indication: Neuropathy peripheral

REACTIONS (2)
  - Syncope [Unknown]
  - Off label use [Not Recovered/Not Resolved]
